FAERS Safety Report 7550995-2 (Version None)
Quarter: 2011Q2

REPORT INFORMATION
  Report Type: 
  Country: None (occurrence: None)
  Receive Date: 20110616
  Receipt Date: 20110614
  Transmission Date: 20111010
  Serious: Yes (Death)
  Sender: FDA-Public Use
  Company Number: US-AMGEN-USASP2011029259

PATIENT
  Age: 54 Year
  Sex: Male
  Weight: 83.9 kg

DRUGS (1)
  1. NPLATE [Suspect]
     Indication: IDIOPATHIC THROMBOCYTOPENIC PURPURA
     Dosage: 280 A?G, QWK
     Route: 058
     Dates: start: 20100813, end: 20101217

REACTIONS (1)
  - COLON CANCER [None]
